FAERS Safety Report 8791930 (Version 1)
Quarter: 2012Q4

REPORT INFORMATION
  Report Type: 
  Country: SE (occurrence: SE)
  Receive Date: 20120918
  Receipt Date: 20120918
  Transmission Date: 20130627
  Serious: Yes (Hospitalization)
  Sender: FDA-Public Use
  Company Number: SE-PFIZER INC-2012226699

PATIENT
  Age: 61 Year
  Sex: Female
  Weight: 73.3 kg

DRUGS (7)
  1. GENOTROPIN [Suspect]
     Dosage: 0.2 mg, 1x/day, 7inj/wk
     Route: 058
     Dates: start: 20000524
  2. CORTISONE ACETATE [Concomitant]
     Indication: BLOOD CORTICOTROPHIN DECREASED
     Dosage: UNK
     Dates: start: 19870415
  3. BEHEPAN [Concomitant]
     Indication: VITAMIN B12 DEFICIENCY
     Dosage: UNK
     Dates: start: 20040325
  4. IDEOS [Concomitant]
     Indication: OSTEOPOROSIS
     Dosage: UNK
     Dates: start: 20030116
  5. ZOMIG NASAL [Concomitant]
     Indication: MIGRAINE
     Dosage: UNK
     Dates: start: 20040318
  6. LIPANTHYL [Concomitant]
     Indication: HYPERLIPIDAEMIA
     Dosage: UNK
     Dates: start: 20040822
  7. LEVAXIN [Concomitant]
     Indication: HYPOTHYROIDISM
     Dosage: UNK
     Dates: start: 20010531

REACTIONS (1)
  - Back disorder [Unknown]
